FAERS Safety Report 5694180-8 (Version None)
Quarter: 2008Q2

REPORT INFORMATION
  Report Type: 
  Country: None (occurrence: None)
  Receive Date: 20080402
  Receipt Date: 20080319
  Transmission Date: 20081010
  Serious: Yes (Hospitalization)
  Sender: FDA-Public Use
  Company Number: 2007BI025506

PATIENT
  Age: 37 Year
  Sex: Female
  Weight: 90.7194 kg

DRUGS (2)
  1. TYSABRI [Suspect]
     Indication: MULTIPLE SCLEROSIS
     Dosage: 300 MG; QM; IV
     Route: 042
     Dates: start: 20070201, end: 20080303
  2. AVONEX [Concomitant]

REACTIONS (4)
  - ABSCESS [None]
  - OPPORTUNISTIC INFECTION [None]
  - OPTIC NEURITIS [None]
  - WOUND INFECTION STAPHYLOCOCCAL [None]
